FAERS Safety Report 16204290 (Version 1)
Quarter: 2019Q2

REPORT INFORMATION
  Report Type: Spontaneous
  Country: US (occurrence: US)
  Receive Date: 20190416
  Receipt Date: 20190416
  Transmission Date: 20190711
  Serious: No
  Sender: FDA-Public Use
  Company Number: US-ASTRAZENECA-2019SE54736

PATIENT
  Sex: Male
  Weight: 145.2 kg

DRUGS (5)
  1. PROTONIX [Concomitant]
     Active Substance: PANTOPRAZOLE SODIUM
     Indication: EPIGASTRIC DISCOMFORT
     Route: 048
  2. GENERIC NEXIUM [Suspect]
     Active Substance: ESOMEPRAZOLE MAGNESIUM
     Indication: EPIGASTRIC DISCOMFORT
     Route: 048
  3. LISINOPRIL HCTZ [Suspect]
     Active Substance: HYDROCHLOROTHIAZIDE\LISINOPRIL
     Indication: HYPERTENSION
     Dosage: 20/12.5 MG PO DAILY ABOUT 3 YEARS AGO
     Route: 048
  4. GENERIC NEXIUM [Suspect]
     Active Substance: ESOMEPRAZOLE MAGNESIUM
     Indication: EPIGASTRIC DISCOMFORT
     Dosage: GENERIC
     Route: 048
  5. BYDUREON [Suspect]
     Active Substance: EXENATIDE
     Indication: TYPE 2 DIABETES MELLITUS
     Route: 058

REACTIONS (6)
  - Nausea [Recovered/Resolved]
  - Gastrointestinal pain [Recovering/Resolving]
  - Diarrhoea [Recovering/Resolving]
  - Urine odour abnormal [Recovering/Resolving]
  - Flatulence [Unknown]
  - Eructation [Recovering/Resolving]
